FAERS Safety Report 13338837 (Version 2)
Quarter: 2017Q3

REPORT INFORMATION
  Report Type: Spontaneous
  Country: GB (occurrence: GB)
  Receive Date: 20170315
  Receipt Date: 20170717
  Transmission Date: 20171127
  Serious: Yes (Death, Other)
  Sender: FDA-Public Use
  Company Number: GB-MYLANLABS-2017M1015493

PATIENT

DRUGS (10)
  1. FORCEVAL [Concomitant]
     Active Substance: FOLIC ACID\IRON\MINERALS\VITAMINS
  2. SIMVASTATIN. [Concomitant]
     Active Substance: SIMVASTATIN
  3. METFORMIN [Concomitant]
     Active Substance: METFORMIN HYDROCHLORIDE
  4. ALENDRONATE MYLAN [Suspect]
     Active Substance: ALENDRONATE SODIUM
     Indication: HIP FRACTURE
     Dosage: 70 MG, QW
     Route: 048
     Dates: start: 20160301, end: 20160805
  5. ASPIRIN. [Concomitant]
     Active Substance: ASPIRIN
  6. PARACETAMOL [Concomitant]
     Active Substance: ACETAMINOPHEN
  7. ADCAL D3 [Concomitant]
     Active Substance: CALCIUM CARBONATE\CHOLECALCIFEROL
  8. SENNA [Concomitant]
     Active Substance: SENNA LEAF\SENNOSIDES\SENNOSIDES A AND B
  9. GLICLAZIDE [Concomitant]
     Active Substance: GLICLAZIDE
  10. HYDROXOCOBALAMIN [Concomitant]
     Active Substance: HYDROXOCOBALAMIN

REACTIONS (7)
  - Unresponsive to stimuli [Unknown]
  - Confusional state [Unknown]
  - Oral pain [Not Recovered/Not Resolved]
  - Vomiting [Unknown]
  - Hallucination [Unknown]
  - Oesophagitis haemorrhagic [Fatal]
  - Malaise [Unknown]
